FAERS Safety Report 6922695-0 (Version None)
Quarter: 2010Q3

REPORT INFORMATION
  Report Type: 
  Country: None (occurrence: None)
  Receive Date: 20100813
  Receipt Date: 20100803
  Transmission Date: 20110219
  Serious: Yes (Other)
  Sender: FDA-Public Use
  Company Number: PHHY2010JP50097

PATIENT
  Age: 89 Year
  Sex: Male

DRUGS (9)
  1. FAMVIR [Suspect]
     Indication: HERPES ZOSTER
     Dosage: 500 MG DAILY
     Route: 048
     Dates: start: 20100712, end: 20100718
  2. CARBIDOPA AND LEVODOPA [Concomitant]
     Dosage: UNK
  3. AMANTADINE HYDROCHLORIDE [Concomitant]
     Dosage: UNK
  4. BROTIZOLAM [Concomitant]
     Dosage: UNK
  5. ASPIRIN [Concomitant]
     Dosage: UNK
  6. AZOSEMIDE [Concomitant]
     Dosage: UNK
  7. BERAPROST SODIUM [Concomitant]
     Dosage: UNK
  8. MAGNESIUM OXIDE [Concomitant]
     Dosage: UNK
  9. SODIUM PICOSULFATE [Concomitant]
     Dosage: UNK

REACTIONS (8)
  - AGGRESSION [None]
  - APHONIA [None]
  - C-REACTIVE PROTEIN INCREASED [None]
  - DEPRESSED LEVEL OF CONSCIOUSNESS [None]
  - DYSPHAGIA [None]
  - INSOMNIA [None]
  - MUSCLE SPASMS [None]
  - RESTLESSNESS [None]
